FAERS Safety Report 15343440 (Version 1)
Quarter: 2018Q3

REPORT INFORMATION
  Report Type: Report from Study
  Country: None (occurrence: JP)
  Receive Date: 20180903
  Receipt Date: 20180903
  Transmission Date: 20181010
  Serious: Yes (Hospitalization, Other)
  Sender: FDA-Public Use
  Company Number: JP-UNICHEM PHARMACEUTICALS (USA) INC-UCM201809-000207

PATIENT
  Age: 65 Year
  Sex: Male

DRUGS (10)
  1. TOPIRAMATE. [Suspect]
     Active Substance: TOPIRAMATE
     Indication: STATUS EPILEPTICUS
  2. PHENYTOIN. [Suspect]
     Active Substance: PHENYTOIN
     Indication: STATUS EPILEPTICUS
  3. STIRIPENTOL [Concomitant]
     Active Substance: STIRIPENTOL
     Indication: STATUS EPILEPTICUS
     Dosage: INITIAL DOSE: 500 MG/DAY, TITRATION DOSE: 500 MG/WEEK
  4. LEVETIRACETAM. [Suspect]
     Active Substance: LEVETIRACETAM
     Indication: STATUS EPILEPTICUS
  5. CLOBAZAM [Concomitant]
     Active Substance: CLOBAZAM
     Indication: STATUS EPILEPTICUS
  6. PROPOFOL. [Concomitant]
     Active Substance: PROPOFOL
     Indication: STATUS EPILEPTICUS
     Route: 042
  7. THIOPENTAL [Concomitant]
     Active Substance: THIOPENTAL
     Indication: STATUS EPILEPTICUS
     Route: 042
  8. PERAMPANEL [Suspect]
     Active Substance: PERAMPANEL
     Indication: STATUS EPILEPTICUS
  9. MIDAZOLAM [Concomitant]
     Active Substance: MIDAZOLAM HYDROCHLORIDE
     Indication: STATUS EPILEPTICUS
     Route: 042
  10. METHYLPREDNISOLONE. [Concomitant]
     Active Substance: METHYLPREDNISOLONE
     Indication: STATUS EPILEPTICUS
     Route: 042

REACTIONS (5)
  - Pyrexia [Unknown]
  - Treatment failure [Unknown]
  - Hepatitis [Unknown]
  - Drug reaction with eosinophilia and systemic symptoms [Unknown]
  - Eosinophilia [Unknown]
